FAERS Safety Report 23405363 (Version 1)
Quarter: 2024Q1

REPORT INFORMATION
  Report Type: Spontaneous
  Country: US (occurrence: None)
  Receive Date: 20240112
  Receipt Date: 20240112
  Transmission Date: 20240410
  Serious: Yes (Hospitalization)
  Sender: FDA-Public Use
  Company Number: None

PATIENT
  Age: 54 Year
  Sex: Male
  Weight: 105.39 kg

DRUGS (2)
  1. TECARTUS [Suspect]
     Active Substance: BREXUCABTAGENE AUTOLEUCEL
     Indication: Mantle cell lymphoma
     Dosage: OTHER FREQUENCY : ONCE;?
     Route: 042
     Dates: start: 20231206, end: 20231223
  2. TECARTUS [Concomitant]
     Active Substance: BREXUCABTAGENE AUTOLEUCEL
     Dates: start: 20231206, end: 20231223

REACTIONS (7)
  - Lymphocyte adoptive therapy [None]
  - Cytokine release syndrome [None]
  - Neurotoxicity [None]
  - Cerebral infarction [None]
  - Atrial septal defect [None]
  - Steroid withdrawal syndrome [None]
  - Dehydration [None]
